FAERS Safety Report 10505697 (Version 1)
Quarter: 2014Q4

REPORT INFORMATION
  Report Type: Spontaneous
  Country: NO (occurrence: NO)
  Receive Date: 20141008
  Receipt Date: 20141008
  Transmission Date: 20150528
  Serious: Yes (Hospitalization, Disabling)
  Sender: FDA-Public Use
  Company Number: NO-PFIZER INC-2014272005

PATIENT
  Age: 58 Year
  Sex: Female

DRUGS (2)
  1. LIPITOR [Suspect]
     Active Substance: ATORVASTATIN CALCIUM
     Indication: HYPERCHOLESTEROLAEMIA
     Dosage: 40 MG, 1X/DAY
     Route: 048
     Dates: start: 20130909, end: 201402
  2. LIPITOR [Suspect]
     Active Substance: ATORVASTATIN CALCIUM
     Dosage: 60 MG, 1X/DAY
     Route: 048
     Dates: start: 201402, end: 20140220

REACTIONS (9)
  - Arthralgia [Recovering/Resolving]
  - Chronic fatigue syndrome [Unknown]
  - Rash pruritic [Unknown]
  - Listless [Not Recovered/Not Resolved]
  - Stress [Unknown]
  - Cholecystitis [Unknown]
  - Renal cyst [Unknown]
  - Hepatitis cholestatic [Recovering/Resolving]
  - Autoimmune hepatitis [Recovering/Resolving]

NARRATIVE: CASE EVENT DATE: 201402
